FAERS Safety Report 16276439 (Version 1)
Quarter: 2019Q2

REPORT INFORMATION
  Report Type: Spontaneous
  Country: US (occurrence: US)
  Receive Date: 20190505
  Receipt Date: 20190505
  Transmission Date: 20190711
  Serious: Yes (Disabling, Other)
  Sender: FDA-Public Use
  Company Number: None

PATIENT
  Age: 71 Year
  Sex: Female
  Weight: 95.4 kg

DRUGS (17)
  1. CALCIUM [Concomitant]
     Active Substance: CALCIUM
  2. SAM-E [Concomitant]
     Active Substance: ADEMETIONINE
  3. NAPROXEN. [Concomitant]
     Active Substance: NAPROXEN
  4. VITAMIN D3 [Concomitant]
     Active Substance: CHOLECALCIFEROL
  5. ESTER C [Concomitant]
  6. SYSTANE EYEDROPS [Concomitant]
     Active Substance: POLYETHYLENE GLYCOL 400\PROPYLENE GLYCOL
  7. LIPITOR [Concomitant]
     Active Substance: ATORVASTATIN CALCIUM
  8. PROLIA [Suspect]
     Active Substance: DENOSUMAB
     Indication: OSTEOPOROSIS
     Dosage: ?          QUANTITY:1 INJECTION(S);OTHER FREQUENCY:EVERY 6 MONTHS;?
     Route: 058
     Dates: start: 20190401
  9. ADAIR DISC [Concomitant]
  10. CLARINEX [Concomitant]
     Active Substance: DESLORATADINE
  11. PROBIOTICS [Concomitant]
     Active Substance: PROBIOTICS NOS
  12. LEVEMIR LIQUID [Concomitant]
  13. NEXIUM [Concomitant]
     Active Substance: ESOMEPRAZOLE MAGNESIUM
  14. MULTIVITAMIN [Concomitant]
     Active Substance: VITAMINS
  15. VENTOLIN [Concomitant]
     Active Substance: ALBUTEROL SULFATE
  16. ULTRACET [Concomitant]
     Active Substance: ACETAMINOPHEN\TRAMADOL HYDROCHLORIDE
  17. ASPIRIN. [Concomitant]
     Active Substance: ASPIRIN

REACTIONS (8)
  - Stomatitis [None]
  - Weight increased [None]
  - Blood glucose increased [None]
  - Back pain [None]
  - Erythema [None]
  - Arthralgia [None]
  - Increased appetite [None]
  - Myalgia [None]

NARRATIVE: CASE EVENT DATE: 20190406
